FAERS Safety Report 12361291 (Version 2)
Quarter: 2019Q4

REPORT INFORMATION
  Report Type: Spontaneous
  Country: US (occurrence: US)
  Receive Date: 20160512
  Receipt Date: 20191216
  Transmission Date: 20200122
  Serious: No
  Sender: FDA-Public Use
  Company Number: US-UCBSA-2015029208

PATIENT
  Age: 68 Year
  Sex: Female
  Weight: 56.69 kg

DRUGS (2)
  1. CIMZIA [Suspect]
     Active Substance: CERTOLIZUMAB PEGOL
     Indication: RHEUMATOID ARTHRITIS
  2. CIMZIA [Suspect]
     Active Substance: CERTOLIZUMAB PEGOL
     Indication: CROHN^S DISEASE
     Dosage: 200 MG, EV 2 WEEKS(QOW)
     Dates: start: 201206

REACTIONS (3)
  - Intervertebral disc protrusion [Not Recovered/Not Resolved]
  - Respiratory tract infection [Unknown]
  - Skin fissures [Unknown]

NARRATIVE: CASE EVENT DATE: 201508
